FAERS Safety Report 16426632 (Version 1)
Quarter: 2019Q3

REPORT INFORMATION
  Report Type: Spontaneous
  Country: US (occurrence: US)
  Receive Date: 20190612
  Receipt Date: 20190612
  Transmission Date: 20191004
  Serious: Yes (Hospitalization)
  Sender: FDA-Public Use
  Company Number: None

PATIENT
  Age: 34 Year
  Sex: Female

DRUGS (3)
  1. HYDROMORPHON [Concomitant]
     Active Substance: HYDROMORPHONE
     Dates: start: 20190608
  2. STELARA [Suspect]
     Active Substance: USTEKINUMAB
     Indication: CROHN^S DISEASE
     Dates: start: 20190429
  3. METHACARBAM [Concomitant]
     Dates: start: 20190608

REACTIONS (1)
  - Intestinal resection [None]

NARRATIVE: CASE EVENT DATE: 20190605
